FAERS Safety Report 23935565 (Version 1)
Quarter: 2024Q2

REPORT INFORMATION
  Report Type: Spontaneous
  Country: US (occurrence: US)
  Receive Date: 20240604
  Receipt Date: 20240604
  Transmission Date: 20240715
  Serious: No
  Sender: FDA-Public Use
  Company Number: US-BAUSCHBL-2024BNL027808

PATIENT
  Sex: Female

DRUGS (1)
  1. XIIDRA [Suspect]
     Active Substance: LIFITEGRAST
     Indication: Dry eye
     Route: 047
     Dates: end: 202404

REACTIONS (3)
  - Weight decreased [Not Recovered/Not Resolved]
  - Dysgeusia [Not Recovered/Not Resolved]
  - Inappropriate schedule of product administration [Unknown]
